FAERS Safety Report 10067295 (Version 1)
Quarter: 2014Q2

REPORT INFORMATION
  Report Type: Spontaneous
  Country: US (occurrence: None)
  Receive Date: 20140408
  Receipt Date: 20140408
  Transmission Date: 20141212
  Serious: Yes (Death)
  Sender: FDA-Public Use
  Company Number: None

PATIENT
  Age: 59 Year
  Sex: Male
  Weight: 88.45 kg

DRUGS (1)
  1. TESTOSTERONE [Suspect]
     Indication: PRODUCT USED FOR UNKNOWN INDICATION
     Dosage: I.M. BUTTOCKS
     Route: 030

REACTIONS (5)
  - Asthenia [None]
  - Abnormal behaviour [None]
  - Activities of daily living impaired [None]
  - Impatience [None]
  - Somnolence [None]
